FAERS Safety Report 11432334 (Version 1)
Quarter: 2015Q3

REPORT INFORMATION
  Report Type: Spontaneous
  Country: US (occurrence: US)
  Receive Date: 20150828
  Receipt Date: 20150828
  Transmission Date: 20151125
  Serious: Yes (Hospitalization)
  Sender: FDA-Public Use
  Company Number: US-TEVA-589377USA

PATIENT
  Age: 55 Year
  Sex: Male

DRUGS (1)
  1. CHLORDIAZEPOXIDE [Suspect]
     Active Substance: CHLORDIAZEPOXIDE
     Indication: ALCOHOL WITHDRAWAL SYNDROME
     Dosage: RECEIVED TOTAL OF 300MG OVER 9 DAYS IN TAPERING DOSES
     Route: 065

REACTIONS (3)
  - Mental status changes [Recovered/Resolved]
  - Hepatic encephalopathy [Unknown]
  - Overdose [Unknown]
